FAERS Safety Report 25641718 (Version 2)
Quarter: 2025Q3

REPORT INFORMATION
  Report Type: Spontaneous
  Country: BR (occurrence: BR)
  Receive Date: 20250804
  Receipt Date: 20250813
  Transmission Date: 20251020
  Serious: No
  Sender: ELI LILLY AND COMPANY
  Company Number: BR-ELI_LILLY_AND_COMPANY-BR202506017763

PATIENT
  Sex: Female

DRUGS (8)
  1. EMGALITY [Suspect]
     Active Substance: GALCANEZUMAB-GNLM
     Indication: Migraine
     Route: 065
     Dates: start: 202502
  2. EMGALITY [Suspect]
     Active Substance: GALCANEZUMAB-GNLM
     Dosage: UNK, UNKNOWN
     Route: 065
     Dates: start: 202503
  3. EMGALITY [Suspect]
     Active Substance: GALCANEZUMAB-GNLM
     Dosage: UNK, UNKNOWN
     Route: 065
     Dates: start: 202504
  4. EMGALITY [Suspect]
     Active Substance: GALCANEZUMAB-GNLM
     Dosage: UNK, UNKNOWN
     Route: 065
     Dates: start: 20250519
  5. MACRODANTIN [Suspect]
     Active Substance: NITROFURANTOIN
     Indication: Product used for unknown indication
     Route: 065
  6. NAPROXEN [Concomitant]
     Active Substance: NAPROXEN
     Indication: Headache
     Route: 065
  7. ETODOLAC [Concomitant]
     Active Substance: ETODOLAC
     Indication: Bursitis
     Route: 065
  8. GLIFAGE [Concomitant]
     Active Substance: METFORMIN HYDROCHLORIDE
     Indication: Product used for unknown indication
     Route: 065

REACTIONS (6)
  - Skin discolouration [Recovered/Resolved]
  - Pain [Unknown]
  - Injection site swelling [Recovered/Resolved]
  - Injection site erythema [Recovered/Resolved]
  - Injection site pruritus [Recovered/Resolved]
  - Hypersensitivity [Unknown]

NARRATIVE: CASE EVENT DATE: 20250524
